FAERS Safety Report 16933137 (Version 1)
Quarter: 2019Q4

REPORT INFORMATION
  Report Type: Spontaneous
  Country: US (occurrence: US)
  Receive Date: 20191018
  Receipt Date: 20191018
  Transmission Date: 20200122
  Serious: Yes (Other)
  Sender: FDA-Public Use
  Company Number: US-ROCHE-2435992

PATIENT

DRUGS (5)
  1. AVASTIN [Suspect]
     Active Substance: BEVACIZUMAB
     Indication: ENDOMETRIAL CANCER
     Dosage: UNKNOWN
     Route: 065
     Dates: start: 201801
  2. AVELUMAB [Concomitant]
     Active Substance: AVELUMAB
     Indication: ENDOMETRIAL CANCER
     Dosage: UNKNOWN
     Route: 065
     Dates: start: 20190101
  3. CARBOPLATIN. [Concomitant]
     Active Substance: CARBOPLATIN
  4. TALAZOPARIB. [Concomitant]
     Active Substance: TALAZOPARIB
     Indication: ENDOMETRIAL CANCER
  5. DOCETAXEL. [Concomitant]
     Active Substance: DOCETAXEL
     Indication: ENDOMETRIAL CANCER
     Dosage: UNKNOWN
     Route: 065
     Dates: start: 20190101

REACTIONS (1)
  - Carbohydrate antigen 125 increased [Unknown]
